FAERS Safety Report 9475909 (Version 2)
Quarter: 2013Q4

REPORT INFORMATION
  Report Type: Spontaneous
  Country: US (occurrence: US)
  Receive Date: 20130826
  Receipt Date: 20131210
  Transmission Date: 20140711
  Serious: Yes (Other)
  Sender: FDA-Public Use
  Company Number: US-BAYER-2013-102424

PATIENT
  Age: 31 Year
  Sex: Female

DRUGS (4)
  1. YASMIN [Suspect]
     Dosage: UNK
     Dates: start: 2005, end: 200512
  2. LEXAPRO [Concomitant]
     Dosage: UNK
     Dates: start: 20051129, end: 20060226
  3. ALPRAZOLAM [Concomitant]
     Dosage: UNK
     Dates: start: 20051101
  4. DESONIDE [Concomitant]

REACTIONS (1)
  - Deep vein thrombosis [None]
